FAERS Safety Report 5932305-7 (Version None)
Quarter: 2008Q4

REPORT INFORMATION
  Report Type: 
  Country: None (occurrence: None)
  Receive Date: 20081023
  Receipt Date: 20081016
  Transmission Date: 20090506
  Serious: Yes (Death)
  Sender: FDA-Public Use
  Company Number: 2008-185470-NL

PATIENT
  Age: 55 Year
  Sex: Male

DRUGS (7)
  1. MIRTAZAPINE [Suspect]
     Dosage: ORAL
     Route: 048
  2. VERAPAMIL [Suspect]
     Dosage: ORAL
     Route: 048
  3. GABAPENTIN [Suspect]
     Dosage: ORAL
     Route: 048
  4. RISPERIDONE [Suspect]
     Dosage: ORAL
     Route: 048
  5. HYDROCODONE BITARTRATE + ACETAMINOPHEN [Suspect]
  6. ACETAMINOPHEN [Suspect]
     Dosage: ORAL
     Route: 048
  7. PRAVASTATIN [Suspect]
     Dosage: ORAL
     Route: 048

REACTIONS (1)
  - COMPLETED SUICIDE [None]
